FAERS Safety Report 10133709 (Version 1)
Quarter: 2014Q2

REPORT INFORMATION
  Report Type: Spontaneous
  Country: DE (occurrence: DE)
  Receive Date: 20140428
  Receipt Date: 20140428
  Transmission Date: 20141212
  Serious: Yes (Other)
  Sender: FDA-Public Use
  Company Number: DE-ACTAVIS-2014-08172

PATIENT
  Age: 46 Year
  Sex: Female

DRUGS (7)
  1. VENLAFAXINE (UNKNOWN) [Suspect]
     Indication: MAJOR DEPRESSION
     Dosage: 112.5 MG, DAILY
     Route: 065
  2. VENLAFAXINE (UNKNOWN) [Interacting]
     Dosage: 150 MG, DAILY
     Route: 065
  3. VENLAFAXINE (UNKNOWN) [Interacting]
     Dosage: 37.5 MG, DAILY
     Route: 065
  4. VENLAFAXINE (UNKNOWN) [Interacting]
     Dosage: 75 MG, DAILY
     Route: 065
  5. VENLAFAXINE (UNKNOWN) [Interacting]
     Dosage: 112.5 MG, DAILY, FROM DAY 22
     Route: 065
  6. LITHIUM CARBONATE (UNKNOWN) [Interacting]
     Indication: MAJOR DEPRESSION
     Dosage: 375 MG, DAILY, CORESPONDING TO 18.3 MMOL LITHIUM (SERUM CONCENTRATION: 0.8MMOL/L)
     Route: 065
  7. TRIMETHOPRIM-SULFAMETHOXAZOLE (UNKNOWN) [Interacting]
     Indication: CYSTITIS
     Dosage: 960 MG, BID
     Route: 065

REACTIONS (2)
  - Resting tremor [Recovered/Resolved]
  - Drug interaction [Recovered/Resolved]
